FAERS Safety Report 17863972 (Version 1)
Quarter: 2020Q2

REPORT INFORMATION
  Report Type: Spontaneous
  Country: LB (occurrence: LB)
  Receive Date: 20200605
  Receipt Date: 20200605
  Transmission Date: 20200714
  Serious: Yes (Other)
  Sender: FDA-Public Use
  Company Number: LB-ASTRAZENECA-2020SE72125

PATIENT
  Sex: Female

DRUGS (1)
  1. TAGRISSO [Suspect]
     Active Substance: OSIMERTINIB
     Indication: BOWEN^S DISEASE
     Dosage: UNKNOWN
     Route: 048
     Dates: start: 20180901, end: 20200602

REACTIONS (1)
  - Malignant neoplasm progression [Unknown]
